FAERS Safety Report 4726570-1 (Version None)
Quarter: 2005Q3

REPORT INFORMATION
  Report Type: 
  Country: None (occurrence: None)
  Receive Date: 20050727
  Receipt Date: 20050412
  Transmission Date: 20060218
  Serious: Yes (Hospitalization)
  Sender: FDA-Public Use
  Company Number: CA-MERCK-0504CAN00120

PATIENT
  Age: 54 Year
  Sex: Male
  Weight: 114 kg

DRUGS (3)
  1. VIOXX [Suspect]
     Route: 048
     Dates: start: 20040101, end: 20040301
  2. VASOTEC RPD [Concomitant]
     Indication: HYPERTENSION
     Route: 048
  3. ACETAMINOPHEN [Concomitant]
     Indication: PAIN
     Route: 065
     Dates: start: 19850101

REACTIONS (1)
  - MYOCARDIAL INFARCTION [None]
